FAERS Safety Report 14311712 (Version 2)
Quarter: 2017Q4

REPORT INFORMATION
  Report Type: Spontaneous
  Country: IT (occurrence: IT)
  Receive Date: 20171221
  Receipt Date: 20171229
  Transmission Date: 20180321
  Serious: Yes (Hospitalization)
  Sender: FDA-Public Use
  Company Number: IT-ASTRAZENECA-2017SF28173

PATIENT
  Age: 73 Year
  Sex: Female

DRUGS (10)
  1. LANOXIN [Concomitant]
     Active Substance: DIGOXIN
     Dosage: 0.125MG UNKNOWN
  2. PRADAXA [Concomitant]
     Active Substance: DABIGATRAN ETEXILATE MESYLATE
  3. TOLEP [Concomitant]
     Active Substance: OXCARBAZEPINE
     Dosage: 300.0MG UNKNOWN
  4. SEROQUEL [Suspect]
     Active Substance: QUETIAPINE FUMARATE
     Dosage: 1.0DF ONCE/SINGLE ADMINISTRATION
     Route: 048
     Dates: start: 20171124, end: 20171129
  5. NORMIX [Concomitant]
     Active Substance: RIFAXIMIN
     Dosage: 200.0MG UNKNOWN
  6. DUROGESIC [Concomitant]
     Active Substance: FENTANYL
     Dosage: 75 MCG/HOUR TRANSDERMIC PATCH
     Route: 062
  7. CARDICOR [Concomitant]
     Active Substance: BISOPROLOL
     Dosage: 2.5MG UNKNOWN
  8. EUTIROX [Concomitant]
     Active Substance: LEVOTHYROXINE SODIUM
     Dosage: 75.0MG UNKNOWN
  9. DROPAXIN [Concomitant]
     Dosage: 10 MG/ML ORAL DROPS, SOLUTION
     Route: 048
  10. SEROQUEL [Suspect]
     Active Substance: QUETIAPINE FUMARATE
     Dosage: 1.0DF ONCE/SINGLE ADMINISTRATION
     Route: 048
     Dates: start: 20171124, end: 20171129

REACTIONS (1)
  - Sopor [Recovered/Resolved]

NARRATIVE: CASE EVENT DATE: 20171127
